FAERS Safety Report 4588010-5 (Version None)
Quarter: 2005Q1

REPORT INFORMATION
  Report Type: 
  Country: None (occurrence: None)
  Receive Date: 20050217
  Receipt Date: 20050202
  Transmission Date: 20050727
  Serious: Yes (Death, Hospitalization)
  Sender: FDA-Public Use
  Company Number: 2004S1003441

PATIENT
  Age: 57 Year
  Sex: Male
  Weight: 122.0176 kg

DRUGS (3)
  1. CLOZAPINE [Suspect]
     Indication: SCHIZOPHRENIA
     Dosage: 100 MG TID, 300 MG HS, ORAL
     Route: 048
     Dates: start: 20040901
  2. DIVALPROEX SODIUM [Concomitant]
  3. BENZTROPINE MESYLATE [Concomitant]

REACTIONS (3)
  - COMA [None]
  - PNEUMONIA [None]
  - WHITE BLOOD CELL COUNT INCREASED [None]
